FAERS Safety Report 16858504 (Version 2)
Quarter: 2020Q2

REPORT INFORMATION
  Report Type: Report from Study
  Country: FR (occurrence: FR)
  Receive Date: 20190926
  Receipt Date: 20200629
  Transmission Date: 20200713
  Serious: Yes (Hospitalization)
  Sender: FDA-Public Use
  Company Number: FR-REGENERON PHARMACEUTICALS, INC.-2019-54707

PATIENT

DRUGS (17)
  1. CEMIPLIMAB [Suspect]
     Active Substance: CEMIPLIMAB
     Indication: BASAL CELL CARCINOMA
     Dosage: 350 MG, Q3W
     Route: 042
     Dates: start: 20180302
  2. PARACETAMOL [Concomitant]
     Active Substance: ACETAMINOPHEN
     Indication: TENDONITIS
     Dosage: UNK, AS NECESSARY
     Route: 048
     Dates: start: 20180525
  3. MELATONIN [Concomitant]
     Active Substance: MELATONIN
     Indication: INSOMNIA
     Dosage: UNK TABLETS, QD
     Route: 048
     Dates: start: 201901
  4. FLUOROMETHOLONE. [Concomitant]
     Active Substance: FLUOROMETHOLONE
     Indication: EYE DISORDER
     Dosage: 1 GTT, BID
     Route: 047
  5. VITAMIN A                          /00056003/ [Concomitant]
     Indication: CONJUNCTIVAL HYPERAEMIA
     Dosage: 1 DROP, QD
     Route: 047
     Dates: start: 20181019
  6. EUPHYTOSE                          /05965601/ [Concomitant]
     Active Substance: HERBALS
     Indication: STRESS
     Dosage: UNK TABLETS, AS NECESSARY
     Route: 048
     Dates: start: 201901
  7. APIXABAN [Concomitant]
     Active Substance: APIXABAN
     Indication: PHLEBITIS
     Dosage: 10 MG, BID
     Route: 048
     Dates: start: 20190708
  8. BETAINE CITRATE [Concomitant]
     Active Substance: BETAINE CITRATE
     Indication: ABDOMINAL DISTENSION
     Dosage: UNK, AS NECESSARY
     Route: 048
  9. HYLO COMOD [Concomitant]
     Active Substance: HYALURONATE SODIUM
     Indication: CONJUNCTIVAL HYPERAEMIA
     Dosage: 1 DROP, QD
     Route: 047
     Dates: start: 20181109
  10. LERCANIDIPINE [Concomitant]
     Active Substance: LERCANIDIPINE
     Indication: HYPERTENSION
     Dosage: 5 MG, QD
     Route: 048
     Dates: start: 20190607
  11. TAMSULOSINE                        /01280301/ [Concomitant]
     Active Substance: TAMSULOSIN
     Indication: BENIGN PROSTATIC HYPERPLASIA
     Dosage: 0.4 MG, QD
     Route: 048
     Dates: start: 20190708
  12. DIOSMECTITE [Concomitant]
     Active Substance: MONTMORILLONITE
     Indication: DRUG INEFFECTIVE
     Dosage: 1 UNIT, QD
     Route: 048
     Dates: start: 20190708
  13. OMEXEL [Concomitant]
     Active Substance: TAMSULOSIN HYDROCHLORIDE
     Indication: BENIGN PROSTATIC HYPERPLASIA
     Dosage: UNK, QD
     Route: 048
  14. VITABACT [Concomitant]
     Active Substance: PICLOXYDINE DIHYDROCHLORIDE
     Indication: EYE DISORDER
     Dosage: 1 GTT, AS NECESSARY
     Route: 047
     Dates: start: 200803
  15. XAILIN [Concomitant]
     Indication: DRY EYE
     Dosage: GEL, QD
     Route: 047
     Dates: start: 201812
  16. COLCHICINE. [Concomitant]
     Active Substance: COLCHICINE
     Indication: PHLEBITIS
     Dosage: 1 MG, QD
     Route: 048
     Dates: start: 20190708, end: 20190918
  17. EUPHYTOSE                          /05965601/ [Concomitant]
     Active Substance: HERBALS
     Indication: NERVOUSNESS

REACTIONS (1)
  - Adrenal insufficiency [Not Recovered/Not Resolved]

NARRATIVE: CASE EVENT DATE: 20190909
